FAERS Safety Report 11775277 (Version 3)
Quarter: 2015Q4

REPORT INFORMATION
  Report Type: Spontaneous
  Country: GB (occurrence: GB)
  Receive Date: 20151124
  Receipt Date: 20151224
  Transmission Date: 20160304
  Serious: Yes (Other)
  Sender: FDA-Public Use
  Company Number: GB-AMGEN-GBRSP2015124240

PATIENT
  Age: 31 Year
  Sex: Female

DRUGS (1)
  1. ENBREL [Suspect]
     Active Substance: ETANERCEPT
     Indication: ANKYLOSING SPONDYLITIS
     Dosage: 50 MG, WEEKLY
     Route: 065
     Dates: start: 20151105

REACTIONS (7)
  - Condition aggravated [Unknown]
  - Pain [Unknown]
  - Limb discomfort [Unknown]
  - Malaise [Unknown]
  - Vomiting [Unknown]
  - Ankylosing spondylitis [Unknown]
  - Discomfort [Unknown]

NARRATIVE: CASE EVENT DATE: 201511
